FAERS Safety Report 23193589 (Version 22)
Quarter: 2025Q1

REPORT INFORMATION
  Report Type: Report from Study
  Country: CO (occurrence: CO)
  Receive Date: 20231116
  Receipt Date: 20250325
  Transmission Date: 20250409
  Serious: Yes (Hospitalization, Other)
  Sender: TAKEDA
  Company Number: CO-TAKEDA-2023TUS099286

PATIENT
  Age: 24 Year
  Sex: Male
  Weight: 47 kg

DRUGS (5)
  1. TEDUGLUTIDE [Suspect]
     Active Substance: TEDUGLUTIDE
     Indication: Short-bowel syndrome
     Dosage: 4 MILLIGRAM, QD
     Dates: start: 20231010
  2. TEDUGLUTIDE [Suspect]
     Active Substance: TEDUGLUTIDE
     Dosage: 2.35 MILLIGRAM, QD
  3. TEDUGLUTIDE [Suspect]
     Active Substance: TEDUGLUTIDE
     Dosage: 2.88 MILLIGRAM, QD
  4. TEDUGLUTIDE [Suspect]
     Active Substance: TEDUGLUTIDE
     Dosage: 3 MILLIGRAM, QD
  5. TEDUGLUTIDE [Suspect]
     Active Substance: TEDUGLUTIDE
     Dosage: 4 MILLIGRAM, QD

REACTIONS (28)
  - Abdominal hernia [Unknown]
  - Vascular device infection [Recovering/Resolving]
  - Pulmonary thrombosis [Unknown]
  - Cardiac ventricular thrombosis [Unknown]
  - Stoma site haemorrhage [Unknown]
  - Asthenia [Unknown]
  - Stomal hernia [Unknown]
  - Malaise [Recovered/Resolved]
  - Rhinorrhoea [Recovered/Resolved]
  - Haemoptysis [Recovered/Resolved]
  - Pyrexia [Unknown]
  - Cough [Recovered/Resolved]
  - Weight decreased [Unknown]
  - Treatment noncompliance [Unknown]
  - Product use issue [Unknown]
  - Product availability issue [Unknown]
  - Inappropriate schedule of product administration [Unknown]
  - Product use in unapproved indication [Unknown]
  - Gastrointestinal stoma output increased [Recovered/Resolved]
  - Weight increased [Unknown]
  - Pain [Unknown]
  - Face oedema [Not Recovered/Not Resolved]
  - Stoma complication [Not Recovered/Not Resolved]
  - Product physical issue [Unknown]
  - Product prescribing error [Unknown]
  - Incorrect dose administered [Unknown]
  - Fluid retention [Unknown]
  - Headache [Recovered/Resolved]

NARRATIVE: CASE EVENT DATE: 20231010
